FAERS Safety Report 17134628 (Version 1)
Quarter: 2019Q4

REPORT INFORMATION
  Report Type: Spontaneous
  Country: IN (occurrence: IN)
  Receive Date: 20191210
  Receipt Date: 20191210
  Transmission Date: 20200122
  Serious: Yes (Other)
  Sender: FDA-Public Use
  Company Number: IN-MYLANLABS-2019M1121924

PATIENT
  Age: 34 Year
  Sex: Female

DRUGS (2)
  1. EPINEPHRINE. [Suspect]
     Active Substance: EPINEPHRINE
     Indication: LOCAL ANAESTHESIA
     Dosage: 2% LIDOCAINE [LIGNOCAINE] WITH 1:80000 EPINEPHRINE [ADRENALINE] 2ML SOLUTION
     Route: 042
  2. LIGNOCAINE                         /00033401/ [Suspect]
     Active Substance: LIDOCAINE HYDROCHLORIDE
     Indication: LOCAL ANAESTHESIA
     Dosage: 2% LIDOCAINE [LIGNOCAINE] WITH 1:80000 EPINEPHRINE [ADRENALINE] 2ML SOLUTION
     Route: 042

REACTIONS (1)
  - Gaze palsy [Recovered/Resolved]
